FAERS Safety Report 7439511-3 (Version None)
Quarter: 2011Q2

REPORT INFORMATION
  Report Type: 
  Country: None (occurrence: None)
  Receive Date: 20110427
  Receipt Date: 20110422
  Transmission Date: 20111010
  Serious: Yes (Death)
  Sender: FDA-Public Use
  Company Number: US-AMGEN-USASP2011020702

PATIENT
  Sex: Male

DRUGS (2)
  1. NPLATE [Suspect]
     Indication: IDIOPATHIC THROMBOCYTOPENIC PURPURA
     Dosage: 150 A?G, UNK
     Dates: start: 20101118, end: 20110409
  2. PREDNISONE [Concomitant]

REACTIONS (1)
  - METASTATIC CARCINOMA OF THE BLADDER [None]
